FAERS Safety Report 13141390 (Version 6)
Quarter: 2017Q3

REPORT INFORMATION
  Report Type: Spontaneous
  Country: KR (occurrence: KR)
  Receive Date: 20170124
  Receipt Date: 20170825
  Transmission Date: 20171127
  Serious: Yes (Death, Hospitalization, Other)
  Sender: FDA-Public Use
  Company Number: KR-009507513-1701KOR009215

PATIENT
  Age: 62 Year
  Sex: Male
  Weight: 77.5 kg

DRUGS (26)
  1. EMEND (FOSAPREPITANT DIMEGLUMINE) [Suspect]
     Active Substance: FOSAPREPITANT DIMEGLUMINE
     Dosage: 150 MG, ONCE
     Route: 042
     Dates: start: 20161228, end: 20161228
  2. VINCRISTINE SULFATE. [Concomitant]
     Active Substance: VINCRISTINE SULFATE
     Indication: SMALL CELL LUNG CANCER
     Dosage: 1.9 MG, ONCE, CYCLE 1
     Route: 042
     Dates: start: 20161209, end: 20161209
  3. SOLONDO [Concomitant]
     Active Substance: PREDNISOLONE
     Indication: RADIATION PNEUMONITIS
     Dosage: 10 MG, QD
     Route: 048
     Dates: start: 20161102, end: 20170106
  4. PULMICORT TURBUHALER [Concomitant]
     Active Substance: BUDESONIDE
     Indication: DYSPNOEA
     Dosage: 100 MICROGRAM, BID, STRENGTH: 100 MICROGRAM/DOSE
     Route: 055
     Dates: start: 20161019, end: 20170106
  5. LEXAPRO [Concomitant]
     Active Substance: ESCITALOPRAM OXALATE
     Indication: ANXIETY
     Dosage: 5 MG, QD
     Route: 048
     Dates: start: 20151215, end: 20170106
  6. ALPRAM [Concomitant]
     Active Substance: ALPRAZOLAM
     Indication: ANXIETY
     Dosage: 0.125 MG, QD
     Route: 048
     Dates: start: 20151215, end: 20161227
  7. DEXAMETHASONE SODIUM PHOSPHATE. [Concomitant]
     Active Substance: DEXAMETHASONE SODIUM PHOSPHATE
     Dosage: STRENGTH: 5 MG/ML 12 MG, BID
     Route: 042
     Dates: start: 20161210, end: 20161212
  8. XOTERNA [Concomitant]
     Indication: DYSPNOEA
     Dosage: 1 CAPSULE, QD
     Route: 055
     Dates: start: 20161019, end: 20170106
  9. FLIVAS [Concomitant]
     Active Substance: NAFTOPIDIL
     Indication: BENIGN PROSTATIC HYPERPLASIA
     Dosage: 1 TABLET, QD
     Route: 048
     Dates: start: 20161102, end: 20170106
  10. DOXORUBIN [Concomitant]
     Active Substance: DOXORUBICIN
     Dosage: STRENGTH: 0.2% 25 ML76 MG, ONCE, CYCLE 1
     Route: 042
     Dates: start: 20161228, end: 20161228
  11. DEXAMETHASONE SODIUM PHOSPHATE. [Concomitant]
     Active Substance: DEXAMETHASONE SODIUM PHOSPHATE
     Dosage: STRENGTH: 5 MG/ML 12 MG, ONCE
     Route: 042
     Dates: start: 20161228, end: 20161228
  12. PANTOLINE TABLETS [Concomitant]
     Indication: PROPHYLAXIS
     Dosage: 20 MG, QD
     Route: 048
     Dates: start: 20161019, end: 20170106
  13. EMEND (FOSAPREPITANT DIMEGLUMINE) [Suspect]
     Active Substance: FOSAPREPITANT DIMEGLUMINE
     Indication: PROPHYLAXIS OF NAUSEA AND VOMITING
     Dosage: 150 MG, ONCE
     Route: 042
     Dates: start: 20161209, end: 20161209
  14. DOXORUBIN [Concomitant]
     Active Substance: DOXORUBICIN
     Indication: SMALL CELL LUNG CANCER
     Dosage: STRENGTH: 0.2% 25 ML76 MG, ONCE, CYCLE 1
     Route: 042
     Dates: start: 20161209, end: 20161209
  15. ALOXI [Concomitant]
     Active Substance: PALONOSETRON HYDROCHLORIDE
     Indication: PROPHYLAXIS OF NAUSEA AND VOMITING
     Dosage: 5 ML, ONCE
     Route: 042
     Dates: start: 20161209, end: 20161209
  16. CIALIS [Concomitant]
     Active Substance: TADALAFIL
     Indication: ERECTILE DYSFUNCTION
     Dosage: 5 MG, QD
     Route: 048
     Dates: start: 20160822, end: 20170106
  17. VINCRISTINE SULFATE. [Concomitant]
     Active Substance: VINCRISTINE SULFATE
     Dosage: 1.8 MG, ONCE, CYCLE 2
     Route: 042
     Dates: start: 20161228, end: 20161228
  18. ALOXI [Concomitant]
     Active Substance: PALONOSETRON HYDROCHLORIDE
     Dosage: 5 ML, ONCE
     Route: 042
     Dates: start: 20161228, end: 20161228
  19. ATIVAN [Concomitant]
     Active Substance: LORAZEPAM
     Indication: ANXIETY
     Dosage: 1 MG, QD
     Route: 048
     Dates: start: 20160707, end: 20170106
  20. ENDOXAN [Concomitant]
     Active Substance: CYCLOPHOSPHAMIDE
     Indication: SMALL CELL LUNG CANCER
     Dosage: 1910 MG, ONCE, CYCLE 1
     Route: 042
     Dates: start: 20161209, end: 20161209
  21. ENDOXAN [Concomitant]
     Active Substance: CYCLOPHOSPHAMIDE
     Dosage: 1910 MG, ONCE, CYCLE 1
     Route: 042
     Dates: start: 20161228, end: 20161228
  22. DEXAMETHASONE SODIUM PHOSPHATE. [Concomitant]
     Active Substance: DEXAMETHASONE SODIUM PHOSPHATE
     Indication: PROPHYLAXIS OF NAUSEA AND VOMITING
     Dosage: STRENGTH: 5 MG/ML 12 MG, ONCE
     Route: 042
     Dates: start: 20161209, end: 20161209
  23. TRITTICO [Concomitant]
     Active Substance: TRAZODONE HYDROCHLORIDE
     Indication: ANXIETY
     Dosage: 50 MG, QD
     Route: 048
     Dates: start: 20160303, end: 20161227
  24. STILNOX [Concomitant]
     Active Substance: ZOLPIDEM TARTRATE
     Indication: ANXIETY
     Dosage: 10 MG, QD
     Route: 048
     Dates: start: 20151215, end: 20161227
  25. CURAN [Concomitant]
     Active Substance: RANITIDINE HYDROCHLORIDE
     Indication: PROPHYLAXIS
     Dosage: 150 MG, BID
     Route: 048
     Dates: start: 20161210, end: 20161212
  26. CURAN [Concomitant]
     Active Substance: RANITIDINE HYDROCHLORIDE
     Indication: PROPHYLAXIS
     Dosage: 50 MG, ONCE
     Route: 042
     Dates: start: 20161209, end: 20161209

REACTIONS (6)
  - Pneumonia [Fatal]
  - Neutropenia [Recovered/Resolved]
  - Dyspepsia [Recovered/Resolved]
  - Febrile neutropenia [Not Recovered/Not Resolved]
  - Nausea [Recovered/Resolved]
  - Blood pressure decreased [Not Recovered/Not Resolved]

NARRATIVE: CASE EVENT DATE: 20161219
